FAERS Safety Report 7749750-X (Version None)
Quarter: 2011Q3

REPORT INFORMATION
  Report Type: 
  Country: None (occurrence: None)
  Receive Date: 20110914
  Receipt Date: 20110902
  Transmission Date: 20111222
  Serious: Yes (Death, Life-Threatening, Hospitalization)
  Sender: FDA-Public Use
  Company Number: DE-ELI_LILLY_AND_COMPANY-DE201007001890

PATIENT
  Sex: Female

DRUGS (26)
  1. NOVALGIN [Concomitant]
     Dates: start: 20100518
  2. AMITRIPTYLINE HCL [Concomitant]
     Dates: start: 20100527
  3. ASPIRIN [Concomitant]
     Dates: start: 20100602
  4. KALINOR [Concomitant]
     Dates: start: 20100613
  5. PEMETREXED [Suspect]
     Indication: NON-SMALL CELL LUNG CANCER
     Dosage: 500 MG/M2, DAY 1 EVERY 21 DAYS
     Route: 042
     Dates: start: 20100610
  6. LAXOBERAL [Concomitant]
     Dates: start: 20100629
  7. DEXAMETHASONE [Concomitant]
     Indication: PROPHYLAXIS
     Dosage: UNK, UNKNOWN
     Dates: end: 20100702
  8. LEVOTHYROXINE SODIUM [Concomitant]
     Dosage: 100 UG, UNKNOWN
     Route: 065
     Dates: start: 19880101
  9. PANTOPRAZOLE [Concomitant]
     Dates: start: 20100611
  10. ONDANSETRON [Concomitant]
     Dates: start: 20100610
  11. CISPLATIN [Suspect]
     Indication: NON-SMALL CELL LUNG CANCER
     Dosage: 75 MG/M2, DAY 1 EVERY 21 DAYS
     Route: 042
     Dates: start: 20100610
  12. MOVIPREP [Concomitant]
     Dates: start: 20100521
  13. CIPROFLOXACIN [Concomitant]
     Dates: start: 20100610
  14. TEPILTA [Concomitant]
     Dosage: UNK, UNK
     Dates: start: 20100701, end: 20100701
  15. VITAMIN B-12 [Concomitant]
     Indication: PROPHYLAXIS
     Dosage: UNK, UNKNOWN
     Dates: start: 20100610, end: 20100610
  16. LORAZEPAM [Concomitant]
     Indication: PAIN
     Dates: start: 20100613
  17. CAPROS [Concomitant]
     Indication: PAIN
     Dates: start: 20100616
  18. FRESUBIN [Concomitant]
     Dates: start: 20100630
  19. ESTRADIOL [Concomitant]
     Dates: start: 19820101
  20. BISOPROLOL FUMARATE [Concomitant]
     Dates: start: 20100512
  21. BEVACIZUMAB [Suspect]
     Indication: NON-SMALL CELL LUNG CANCER
     Dosage: 7.5 MG/KG, DAY 1 EVERY 21 DAYS
     Route: 042
     Dates: start: 20100610
  22. FOLIC ACID [Concomitant]
     Indication: PROPHYLAXIS
     Dosage: UNK, UNKNOWN
     Dates: start: 20100601, end: 20100707
  23. METAMIZOLE [Concomitant]
     Dates: start: 20100613
  24. HYDROMORPHONE HCL [Concomitant]
     Dates: start: 20100614
  25. MCP [Concomitant]
     Indication: NAUSEA
     Dosage: UNK, UNK
     Dates: start: 20100611
  26. TRAMADOL HYDROCHLORIDE [Concomitant]
     Dates: start: 20100611

REACTIONS (3)
  - DEHYDRATION [None]
  - COMA [None]
  - PNEUMONIA ASPIRATION [None]
